FAERS Safety Report 23076669 (Version 1)
Quarter: 2023Q4

REPORT INFORMATION
  Report Type: Spontaneous
  Country: CA (occurrence: CA)
  Receive Date: 20231017
  Receipt Date: 20231017
  Transmission Date: 20240110
  Serious: Yes (Other)
  Sender: FDA-Public Use
  Company Number: CA-ALCON LABORATORIES-ALC2023CA004626

PATIENT
  Age: 61 Year
  Sex: Female

DRUGS (1)
  1. ATROPINE [Suspect]
     Active Substance: ATROPINE
     Indication: Product used for unknown indication
     Dosage: UNK
     Route: 047

REACTIONS (3)
  - Accidental exposure to product [Recovering/Resolving]
  - Incorrect route of product administration [Recovering/Resolving]
  - Mydriasis [Recovering/Resolving]
